FAERS Safety Report 21883229 (Version 1)
Quarter: 2023Q1

REPORT INFORMATION
  Report Type: Report from Study
  Country: US (occurrence: US)
  Receive Date: 20230119
  Receipt Date: 20230119
  Transmission Date: 20230418
  Serious: No
  Sender: FDA-Public Use
  Company Number: US-ABBVIE-4241997

PATIENT
  Age: 73 Year
  Sex: Female

DRUGS (1)
  1. HUMIRA [Suspect]
     Active Substance: ADALIMUMAB
     Indication: Product used for unknown indication
     Route: 058
     Dates: end: 20220628

REACTIONS (6)
  - Illness [Unknown]
  - COVID-19 [Recovered/Resolved]
  - Fall [Unknown]
  - Kidney infection [Unknown]
  - Post-traumatic pain [Unknown]
  - Fall [Unknown]

NARRATIVE: CASE EVENT DATE: 20221125
